FAERS Safety Report 20643344 (Version 1)
Quarter: 2022Q1

REPORT INFORMATION
  Report Type: Spontaneous
  Country: US (occurrence: None)
  Receive Date: 20220325
  Receipt Date: 20220325
  Transmission Date: 20220423
  Serious: No
  Sender: FDA-Public Use
  Company Number: None

PATIENT
  Age: 77 Year
  Sex: Male
  Weight: 105.23 kg

DRUGS (6)
  1. CAPECITABINE [Suspect]
     Active Substance: CAPECITABINE
     Indication: Colon cancer
     Dosage: OTHER QUANTITY : 1000-1500MG;?FREQUENCY : TWICE A DAY;?
     Route: 048
  2. AMIODARONE [Concomitant]
     Active Substance: AMIODARONE
  3. COLACE [Concomitant]
     Active Substance: DOCUSATE SODIUM
  4. ELIQUIS [Concomitant]
     Active Substance: APIXABAN
  5. FERROUS SULFATE [Concomitant]
     Active Substance: FERROUS SULFATE
  6. PANTOPRAZOLE SODIUM [Concomitant]
     Active Substance: PANTOPRAZOLE SODIUM

REACTIONS (4)
  - Pneumonia [None]
  - Therapy interrupted [None]
  - Fall [None]
  - Head injury [None]
